FAERS Safety Report 7539349-2 (Version None)
Quarter: 2011Q2

REPORT INFORMATION
  Report Type: 
  Country: None (occurrence: None)
  Receive Date: 20110610
  Receipt Date: 20110602
  Transmission Date: 20111010
  Serious: Yes (Death)
  Sender: FDA-Public Use
  Company Number: GB-AMGEN-GBRCT2011024519

PATIENT
  Age: 38 Year
  Sex: Female

DRUGS (15)
  1. RENAGEL [Concomitant]
     Dosage: 800 UNK, UNK
  2. ARANESP [Concomitant]
     Dosage: 60 A?G, QWK
  3. ASCORBIC ACID [Concomitant]
     Dosage: UNK UNK, QD
  4. VENOFER [Concomitant]
  5. CINACALCET HYDROCHLORIDE [Suspect]
     Indication: HYPERPARATHYROIDISM SECONDARY
     Dates: start: 20070104
  6. NORETHISTERONE [Concomitant]
     Dosage: UNK UNK, TID
  7. SENNA-MINT WAF [Concomitant]
  8. PLACEBO [Suspect]
     Indication: HYPERPARATHYROIDISM SECONDARY
     Dates: start: 20070104
  9. MORPHINE [Concomitant]
     Dosage: 40 MG, TID
  10. VITAMIN B [Concomitant]
     Dosage: UNK UNK, QD
  11. ATENOLOL [Concomitant]
     Dosage: UNK UNK, QD
  12. WARFARIN SODIUM [Concomitant]
     Dosage: UNK UNK, PRN
  13. DICLOFENAC SODIUM [Concomitant]
     Dosage: 25 MG, QD
  14. ALFACALCIDOL [Concomitant]
     Dosage: 2 A?G, 3 TIMES/WK
  15. OMEPRAZOLE [Concomitant]
     Dosage: 20 MG, BID

REACTIONS (1)
  - DEATH [None]
